FAERS Safety Report 9315246 (Version 1)
Quarter: 2013Q2

REPORT INFORMATION
  Report Type: Spontaneous
  Country: US (occurrence: US)
  Receive Date: 20130529
  Receipt Date: 20130529
  Transmission Date: 20140414
  Serious: Yes (Death, Life-Threatening, Hospitalization, Other)
  Sender: FDA-Public Use
  Company Number: US-BRISTOL-MYERS SQUIBB COMPANY-18571679

PATIENT
  Age: 58 Year
  Sex: Female

DRUGS (21)
  1. BYETTA [Suspect]
     Indication: DIABETES MELLITUS
  2. SPIRONOLACTONE [Concomitant]
  3. MS CONTIN [Concomitant]
  4. PROMETHAZINE [Concomitant]
  5. URSO [Concomitant]
  6. PREVACID [Concomitant]
  7. LACTULOSE [Concomitant]
  8. POTASSIUM [Concomitant]
  9. FOLIC ACID [Concomitant]
  10. XIFAXAN [Concomitant]
  11. LEVAQUIN [Concomitant]
     Route: 042
  12. PROTONIX [Concomitant]
     Route: 042
  13. TORADOL [Concomitant]
     Route: 042
  14. PHENERGAN [Concomitant]
     Indication: NAUSEA
  15. MORPHINE [Concomitant]
     Indication: PAIN
  16. SOLU-MEDROL [Concomitant]
     Dosage: 1DF=60 UNITS NOS
     Route: 042
  17. SPIRIVA [Concomitant]
  18. NOVOLIN R [Concomitant]
     Indication: BLOOD GLUCOSE INCREASED
  19. LASIX [Concomitant]
     Route: 048
  20. LORTAB [Concomitant]
     Indication: PAIN
     Route: 048
  21. XANAX [Concomitant]
     Indication: ANXIETY

REACTIONS (7)
  - Death [Fatal]
  - Acute respiratory failure [Fatal]
  - Pancreatitis [Recovering/Resolving]
  - Renal failure acute [Recovering/Resolving]
  - Anaemia [Recovering/Resolving]
  - Gastrointestinal haemorrhage [Recovering/Resolving]
  - Hepatic encephalopathy [Recovering/Resolving]
